FAERS Safety Report 14687435 (Version 1)
Quarter: 2018Q1

REPORT INFORMATION
  Report Type: Spontaneous
  Country: IR (occurrence: IR)
  Receive Date: 20180328
  Receipt Date: 20180328
  Transmission Date: 20180509
  Serious: Yes (Other)
  Sender: FDA-Public Use
  Company Number: IR-UNICHEM PHARMACEUTICALS (USA) INC-UCM201803-000080

PATIENT
  Age: 40 Year
  Sex: Female

DRUGS (1)
  1. TOPIRAMATE. [Suspect]
     Active Substance: TOPIRAMATE
     Indication: MIGRAINE

REACTIONS (5)
  - Hypopyon [Unknown]
  - Iris adhesions [Not Recovered/Not Resolved]
  - Angle closure glaucoma [Recovered/Resolved]
  - Iridocyclitis [Recovered/Resolved]
  - Product use in unapproved indication [Unknown]
